FAERS Safety Report 4322077-4 (Version None)
Quarter: 2004Q1

REPORT INFORMATION
  Report Type: 
  Country: None (occurrence: None)
  Receive Date: 20040323
  Receipt Date: 20030816
  Transmission Date: 20041129
  Serious: Yes (Other)
  Sender: FDA-Public Use
  Company Number: US-GLAXOSMITHKLINE-A0422265A

PATIENT
  Age: 48 Year
  Sex: Female
  Weight: 85 kg

DRUGS (3)
  1. PAXIL CR [Suspect]
     Indication: DEPRESSION
     Dosage: 25MG PER DAY
     Route: 048
     Dates: start: 20030922
  2. DETROL [Concomitant]
  3. ZANAFLEX [Concomitant]
     Dosage: 4MG THREE TIMES PER DAY

REACTIONS (2)
  - DEPRESSION [None]
  - SUICIDAL IDEATION [None]
